FAERS Safety Report 9867914 (Version 3)
Quarter: 2014Q2

REPORT INFORMATION
  Report Type: Report from Study
  Country: BR (occurrence: BR)
  Receive Date: 20140204
  Receipt Date: 20140411
  Transmission Date: 20141212
  Serious: Yes (Hospitalization, Other)
  Sender: FDA-Public Use
  Company Number: PHHY2014BR012346

PATIENT
  Age: 70 Year
  Sex: Female

DRUGS (3)
  1. ONBREZ [Suspect]
     Indication: CHRONIC OBSTRUCTIVE PULMONARY DISEASE
     Dosage: 300 UG, QD, (150 X 2 INHALATIONS DAILY) ONCE A DAY
     Route: 055
  2. FORASEQ [Suspect]
     Indication: CHRONIC OBSTRUCTIVE PULMONARY DISEASE
     Dosage: 3 DF, (3 INHALATIONS PER DAY, WHEN NECESSARY 4 INHALATIONS DAILY)
     Route: 055
  3. SPIRIVA [Suspect]
     Indication: CHRONIC OBSTRUCTIVE PULMONARY DISEASE
     Dosage: 2 DF, QD (2 INHALATION DAILY)
     Route: 055
     Dates: start: 201307

REACTIONS (12)
  - Chronic obstructive pulmonary disease [Unknown]
  - Pneumonia [Recovered/Resolved]
  - Dyspnoea [Recovering/Resolving]
  - Nasal congestion [Not Recovered/Not Resolved]
  - Fatigue [Recovering/Resolving]
  - Lung disorder [Unknown]
  - Hormone level abnormal [Not Recovered/Not Resolved]
  - Nervous system disorder [Unknown]
  - Oxygen consumption decreased [Unknown]
  - Malaise [Unknown]
  - Memory impairment [Recovering/Resolving]
  - Chills [Recovered/Resolved]
